FAERS Safety Report 22780186 (Version 5)
Quarter: 2023Q4

REPORT INFORMATION
  Report Type: Report from Study
  Country: CA (occurrence: CA)
  Receive Date: 20230803
  Receipt Date: 20231208
  Transmission Date: 20240110
  Serious: Yes (Other)
  Sender: FDA-Public Use
  Company Number: CA-JNJFOC-20220202552

PATIENT
  Age: 59 Year
  Sex: Female
  Weight: 68.2 kg

DRUGS (4)
  1. REMICADE [Suspect]
     Active Substance: INFLIXIMAB
     Indication: Ankylosing spondylitis
     Dosage: INFUSION RECEIVED ON 28-MAR-2022.?ON 11/FEB/2013 THE PATIENT RECEIVED DOSE
     Route: 041
     Dates: start: 20130204
  2. REMICADE [Suspect]
     Active Substance: INFLIXIMAB
     Dosage: INFUSION RECEIVED ON 28-MAR-2022 V6
     Route: 041
     Dates: start: 20130204
  3. REMICADE [Suspect]
     Active Substance: INFLIXIMAB
     Route: 041
     Dates: start: 20130204
  4. REMICADE [Suspect]
     Active Substance: INFLIXIMAB
     Route: 041

REACTIONS (28)
  - Uveitis [Recovering/Resolving]
  - Post-acute COVID-19 syndrome [Not Recovered/Not Resolved]
  - Bronchitis [Not Recovered/Not Resolved]
  - Oral herpes [Recovered/Resolved]
  - COVID-19 [Recovering/Resolving]
  - Aphthous ulcer [Not Recovered/Not Resolved]
  - Musculoskeletal stiffness [Unknown]
  - Burning sensation [Not Recovered/Not Resolved]
  - Stress [Unknown]
  - Nasal polyps [Recovering/Resolving]
  - Arthropod bite [Not Recovered/Not Resolved]
  - Spinal pain [Unknown]
  - Swelling [Unknown]
  - Dysgeusia [Not Recovered/Not Resolved]
  - Alopecia [Not Recovered/Not Resolved]
  - Vertigo [Unknown]
  - Insomnia [Unknown]
  - Pruritus [Unknown]
  - Pain in extremity [Not Recovered/Not Resolved]
  - Arthralgia [Not Recovered/Not Resolved]
  - Back pain [Unknown]
  - Fatigue [Not Recovered/Not Resolved]
  - Neck pain [Unknown]
  - Dizziness [Unknown]
  - Head discomfort [Unknown]
  - Headache [Not Recovered/Not Resolved]
  - Therapeutic response decreased [Unknown]
  - Off label use [Unknown]

NARRATIVE: CASE EVENT DATE: 20201014
